FAERS Safety Report 9540716 (Version 3)
Quarter: 2013Q4

REPORT INFORMATION
  Report Type: Spontaneous
  Country: US (occurrence: US)
  Receive Date: 20130920
  Receipt Date: 20131031
  Transmission Date: 20140711
  Serious: No
  Sender: FDA-Public Use
  Company Number: US-PFIZER INC-2013268544

PATIENT
  Age: 59 Year
  Sex: Male
  Weight: 77.1 kg

DRUGS (4)
  1. VIAGRA [Suspect]
     Indication: ERECTILE DYSFUNCTION
     Dosage: 100 MG, ONE DAILY AS NEEDED
     Route: 048
     Dates: start: 201309
  2. CARVEDILOL [Interacting]
     Indication: ANTICOAGULANT THERAPY
     Dosage: 3.125 MG, 2X/DAY
     Dates: start: 2013
  3. ATORVASTATIN [Concomitant]
     Indication: BLOOD CHOLESTEROL ABNORMAL
     Dosage: 20 MG, 2X/DAY
  4. LISINOPRIL [Concomitant]
     Indication: BLOOD PRESSURE ABNORMAL
     Dosage: 5 MG, DAILY

REACTIONS (3)
  - Drug interaction [Unknown]
  - Drug ineffective [Recovered/Resolved]
  - Off label use [Unknown]
